FAERS Safety Report 9328579 (Version 1)
Quarter: 2013Q2

REPORT INFORMATION
  Report Type: Spontaneous
  Country: US (occurrence: US)
  Receive Date: 20130604
  Receipt Date: 20130604
  Transmission Date: 20140414
  Serious: No
  Sender: FDA-Public Use
  Company Number: US-SANOFI-AVENTIS-2012SA061622

PATIENT
  Age: 70 Year
  Sex: Female

DRUGS (4)
  1. LANTUS SOLOSTAR [Suspect]
     Indication: TYPE 2 DIABETES MELLITUS
     Dosage: 30 UNITS AM AND 30 UNITS PM DOSE:30 UNIT(S)
     Route: 058
     Dates: start: 2010
  2. LANTUS SOLOSTAR [Suspect]
     Indication: TYPE 2 DIABETES MELLITUS
     Dosage: 30 UNITS AM AND 30 UNITS PM DOSE:30 UNIT(S)
     Route: 058
     Dates: start: 2010
  3. SOLOSTAR [Suspect]
     Indication: TYPE 2 DIABETES MELLITUS
     Dates: start: 2010
  4. SOLOSTAR [Suspect]
     Indication: TYPE 2 DIABETES MELLITUS
     Dates: start: 2010

REACTIONS (7)
  - Nausea [Unknown]
  - Pruritus [Unknown]
  - Scratch [Unknown]
  - Dry mouth [Unknown]
  - Drug dose omission [Unknown]
  - Blood glucose decreased [Unknown]
  - Blood glucose increased [Unknown]
